FAERS Safety Report 8054361-5 (Version None)
Quarter: 2012Q1

REPORT INFORMATION
  Report Type: 
  Country: None (occurrence: None)
  Receive Date: 20120118
  Receipt Date: 20120113
  Transmission Date: 20120608
  Serious: Yes (Hospitalization, Other)
  Sender: FDA-Public Use
  Company Number: PHHY2011AU111894

PATIENT
  Sex: Male

DRUGS (6)
  1. ACETAMINOPHEN W/ CODEINE [Concomitant]
     Indication: FRACTURE
     Dosage: 500 MG
     Route: 048
  2. PANTOPRAZOLE [Concomitant]
     Indication: FRACTURE
     Dosage: 40 MG, DAILY
     Route: 048
     Dates: start: 20090501
  3. ZOLEDRONOC ACID [Suspect]
     Indication: OSTEOPOROSIS
     Dosage: 5 MG, YEARLY
     Route: 042
     Dates: start: 20101122
  4. VITAMIN D [Concomitant]
     Indication: FRACTURE
     Dosage: 10000/DAY
     Route: 048
  5. CODEINE SUL TAB [Concomitant]
     Indication: FRACTURE
     Dosage: 30 MG
     Route: 048
  6. CALCIUM [Concomitant]
     Indication: FRACTURE
     Dosage: 3 TABS/DAY
     Route: 048

REACTIONS (3)
  - HYPERTENSION [None]
  - PALPITATIONS [None]
  - TACHYCARDIA [None]
